FAERS Safety Report 12196516 (Version 2)
Quarter: 2016Q1

REPORT INFORMATION
  Report Type: Other
  Country: DK (occurrence: DK)
  Receive Date: 20160321
  Receipt Date: 20160331
  Transmission Date: 20160526
  Serious: Yes (Hospitalization)
  Sender: FDA-Public Use
  Company Number: DK-MUNDIPHARMA DS AND PHARMACOVIGILANCE-GBR-2016-0034752

PATIENT
  Age: 27 Year
  Sex: Female

DRUGS (1)
  1. MORPHINE [Suspect]
     Active Substance: MORPHINE

REACTIONS (5)
  - Poisoning [Recovering/Resolving]
  - Loss of consciousness [Recovering/Resolving]
  - Hypopnoea [Recovering/Resolving]
  - Contraindicated drug administered [Recovering/Resolving]
  - Cyanosis [Recovering/Resolving]
